FAERS Safety Report 5916884-1 (Version None)
Quarter: 2008Q4

REPORT INFORMATION
  Report Type: 
  Country: None (occurrence: None)
  Receive Date: 20081013
  Receipt Date: 20081007
  Transmission Date: 20090506
  Serious: Yes (Other)
  Sender: FDA-Public Use
  Company Number: US-JNJCH-2008051480

PATIENT
  Sex: Female

DRUGS (2)
  1. BENADRYL [Suspect]
     Indication: PRURITUS
     Dosage: TEXT:9 CAPSULES WITHIN 2 HOURS
     Route: 048
  2. CHEMOTHERAPY NOS [Concomitant]

REACTIONS (3)
  - DIZZINESS [None]
  - OVERDOSE [None]
  - VOMITING [None]
